FAERS Safety Report 22176440 (Version 1)
Quarter: 2023Q2

REPORT INFORMATION
  Report Type: Report from Study
  Country: CO (occurrence: CO)
  Receive Date: 20230405
  Receipt Date: 20230405
  Transmission Date: 20230722
  Serious: Yes (Other)
  Sender: FDA-Public Use
  Company Number: CO-ABBVIE-4713960

PATIENT
  Sex: Male
  Weight: 57 kg

DRUGS (1)
  1. VENCLEXTA [Suspect]
     Active Substance: VENETOCLAX
     Indication: Acute myeloid leukaemia
     Dosage: STRENGTH- 100 MILLIGRAM
     Route: 048
     Dates: start: 20230228

REACTIONS (3)
  - Post procedural inflammation [Not Recovered/Not Resolved]
  - Puncture site swelling [Not Recovered/Not Resolved]
  - Pain in extremity [Not Recovered/Not Resolved]
